FAERS Safety Report 25468112 (Version 1)
Quarter: 2025Q2

REPORT INFORMATION
  Report Type: Spontaneous
  Country: US (occurrence: US)
  Receive Date: 20250623
  Receipt Date: 20250623
  Transmission Date: 20250716
  Serious: No
  Sender: BAYER HEALTHCARE PHARMACEUTICALS INC.
  Company Number: US-BAYER-2025A080302

PATIENT
  Age: 28 Year
  Sex: Female

DRUGS (1)
  1. MIRENA [Suspect]
     Active Substance: LEVONORGESTREL
     Indication: Premenstrual dysphoric disorder
     Dosage: 20?G/DAY
     Route: 015
     Dates: start: 20220530

REACTIONS (3)
  - Device use issue [None]
  - Amenorrhoea [Recovered/Resolved]
  - Drug ineffective for unapproved indication [None]

NARRATIVE: CASE EVENT DATE: 20220530
